FAERS Safety Report 8200139-9 (Version None)
Quarter: 2012Q1

REPORT INFORMATION
  Report Type: 
  Country: None (occurrence: None)
  Receive Date: 20120312
  Receipt Date: 20120305
  Transmission Date: 20120608
  Serious: Yes (Hospitalization)
  Sender: FDA-Public Use
  Company Number: US-BAYER-2011-022411

PATIENT
  Age: 26 Year
  Sex: Female
  Weight: 88.9 kg

DRUGS (23)
  1. TOPAMAX [Concomitant]
     Indication: PAIN PROPHYLAXIS
     Dosage: UNK
     Dates: start: 20050801, end: 20090226
  2. MAXALT [Concomitant]
     Indication: MIGRAINE
     Dosage: UNK
     Dates: start: 20090201, end: 20090401
  3. CYMBALTA [Concomitant]
     Indication: DEPRESSION
     Dosage: UNK
     Dates: start: 20050917
  4. PREDNISONE [Concomitant]
     Indication: ANTIINFLAMMATORY THERAPY
     Dosage: UNK
     Dates: start: 20090214, end: 20090326
  5. SODIUM BICARBONATE [Concomitant]
     Indication: GASTROOESOPHAGEAL REFLUX DISEASE
     Dosage: UNK
     Dates: start: 20070101, end: 20090101
  6. YASMIN [Suspect]
     Indication: CONTRACEPTION
     Dosage: UNK
     Dates: start: 20050312, end: 20060807
  7. CORGARD [Concomitant]
     Indication: MIGRAINE PROPHYLAXIS
     Dosage: UNK
     Dates: start: 20090201, end: 20090901
  8. VICODIN [Concomitant]
     Indication: PAIN
     Dosage: UNK
     Dates: start: 20090408, end: 20090413
  9. TIZANIDINE HCL [Concomitant]
     Indication: PAIN
  10. PRINIVIL [Concomitant]
     Indication: HYPERTENSION
     Dosage: UNK
     Dates: start: 20090126, end: 20090226
  11. PHENERGAN [Concomitant]
     Indication: NAUSEA
     Dosage: UNK
     Dates: start: 20090217, end: 20090223
  12. NORCO [Concomitant]
     Indication: PAIN
     Dosage: UNK
     Dates: start: 20090401, end: 20090701
  13. SOMA [Concomitant]
     Indication: MUSCLE SPASMS
     Dosage: UNK
     Dates: start: 20090218, end: 20090318
  14. TIZANIDINE HCL [Concomitant]
     Indication: HEADACHE
     Dosage: UNK
     Dates: start: 20090330, end: 20090629
  15. ULTRAM [Concomitant]
     Indication: PAIN
     Dosage: UNK
     Dates: start: 20090324, end: 20090403
  16. ZEGERID [Concomitant]
     Indication: GASTROOESOPHAGEAL REFLUX DISEASE
     Dosage: UNK
     Dates: start: 20070101, end: 20090101
  17. LYRICA [Concomitant]
     Indication: FIBROMYALGIA
     Dosage: UNK
     Dates: start: 20090314, end: 20090320
  18. DROSPIRENONE AND ETHINYL ESTRADIOL [Suspect]
     Indication: CONTRACEPTION
     Dosage: UNK
     Dates: start: 20081014, end: 20090403
  19. DROSPIRENONE AND ETHINYL ESTRADIOL [Suspect]
     Indication: ACNE
  20. DEPACON [Concomitant]
     Indication: MIGRAINE
     Dosage: UNK
     Dates: start: 20090201
  21. YASMIN [Suspect]
     Indication: ACNE
     Dosage: UNK
     Dates: start: 20070316, end: 20080701
  22. MOBIC [Concomitant]
     Indication: PAIN
     Dosage: UNK
     Dates: start: 20090310, end: 20090410
  23. PHENERGAN [Concomitant]
     Indication: VOMITING

REACTIONS (20)
  - INTRACRANIAL VENOUS SINUS THROMBOSIS [None]
  - TRANSIENT ISCHAEMIC ATTACK [None]
  - INJURY [None]
  - VISUAL IMPAIRMENT [None]
  - PAIN [None]
  - MENTAL DISORDER [None]
  - LOSS OF CONSCIOUSNESS [None]
  - DISTURBANCE IN ATTENTION [None]
  - SCOTOMA [None]
  - FACIAL PAIN [None]
  - MIGRAINE [None]
  - ABORTION INDUCED [None]
  - MEMORY IMPAIRMENT [None]
  - ANXIETY [None]
  - JUGULAR VEIN THROMBOSIS [None]
  - PAIN IN JAW [None]
  - DEPRESSION [None]
  - TRANSVERSE SINUS THROMBOSIS [None]
  - DEAFNESS [None]
  - HEADACHE [None]
